FAERS Safety Report 10016351 (Version 2)
Quarter: 2014Q1

REPORT INFORMATION
  Report Type: Spontaneous
  Country: JP (occurrence: JP)
  Receive Date: 20140317
  Receipt Date: 20140328
  Transmission Date: 20141002
  Serious: Yes (Hospitalization)
  Sender: FDA-Public Use
  Company Number: JP-ABBVIE-14P-087-1210060-00

PATIENT
  Age: 60 Year
  Sex: Female

DRUGS (5)
  1. HUMIRA [Suspect]
     Indication: RHEUMATOID ARTHRITIS
     Route: 058
     Dates: start: 20100114, end: 20131120
  2. HUMIRA [Suspect]
     Route: 058
     Dates: start: 20140101
  3. METHOTREXATE [Concomitant]
     Indication: RHEUMATOID ARTHRITIS
  4. PREDNISOLONE [Concomitant]
     Indication: RHEUMATOID ARTHRITIS
  5. CELECOXIB [Concomitant]
     Indication: RHEUMATOID ARTHRITIS

REACTIONS (1)
  - Vocal cord polyp [Recovering/Resolving]
